FAERS Safety Report 10427026 (Version 1)
Quarter: 2014Q3

REPORT INFORMATION
  Report Type: Spontaneous
  Country: US (occurrence: None)
  Receive Date: 20140902
  Receipt Date: 20140902
  Transmission Date: 20150326
  Serious: No
  Sender: FDA-Public Use
  Company Number: None

PATIENT
  Age: 57 Year
  Sex: Female
  Weight: 72.12 kg

DRUGS (2)
  1. AFRIN [Suspect]
     Active Substance: OXYMETAZOLINE
     Indication: SINUS DISORDER
     Dosage: ONCE?2-3 SPRAYS EACH NOSTRIL, TWICE DAILY, TAKEN IN NOSE
     Route: 045
  2. AFRIN [Suspect]
     Active Substance: OXYMETAZOLINE
     Indication: SWELLING
     Dosage: ONCE?2-3 SPRAYS EACH NOSTRIL, TWICE DAILY, TAKEN IN NOSE
     Route: 045

REACTIONS (1)
  - Product odour abnormal [None]

NARRATIVE: CASE EVENT DATE: 20140824
